FAERS Safety Report 18512737 (Version 1)
Quarter: 2020Q4

REPORT INFORMATION
  Report Type: Spontaneous
  Country: GB (occurrence: GB)
  Receive Date: 20201117
  Receipt Date: 20201117
  Transmission Date: 20210114
  Serious: Yes (Other)
  Sender: FDA-Public Use
  Company Number: GB-ALLERGAN-2043777US

PATIENT
  Sex: Female

DRUGS (3)
  1. PREDNISOLONE UNK [Suspect]
     Active Substance: PREDNISOLONE
     Indication: PRODUCT USED FOR UNKNOWN INDICATION
     Dosage: UNK
  2. VENTOLIN [Suspect]
     Active Substance: ALBUTEROL SULFATE
     Indication: PRODUCT USED FOR UNKNOWN INDICATION
     Dosage: 2 PUFF(S), QD
     Route: 055
  3. NUCALA [Suspect]
     Active Substance: MEPOLIZUMAB
     Indication: ASTHMA
     Dosage: 100 MG, Z(4 WEEKLY); SOLUTION FOR INJECTION IN PRE-FILLED PEN
     Route: 058

REACTIONS (8)
  - Insomnia [Unknown]
  - Dyspnoea exertional [Not Recovered/Not Resolved]
  - Fracture [Unknown]
  - Wheezing [Unknown]
  - SARS-CoV-2 test negative [Unknown]
  - Influenza like illness [Unknown]
  - Hypersensitivity [Unknown]
  - Arthritis [Unknown]

NARRATIVE: CASE EVENT DATE: 202009
